FAERS Safety Report 23644515 (Version 1)
Quarter: 2024Q1

REPORT INFORMATION
  Report Type: Spontaneous
  Country: BR (occurrence: BR)
  Receive Date: 20240318
  Receipt Date: 20240318
  Transmission Date: 20240409
  Serious: Yes (Other)
  Sender: FDA-Public Use
  Company Number: BR-ELI_LILLY_AND_COMPANY-BR202403004032

PATIENT

DRUGS (5)
  1. ABEMACICLIB [Suspect]
     Active Substance: ABEMACICLIB
     Indication: Malignant neoplasm progression
     Dosage: 150 MG, BID
     Route: 065
     Dates: start: 202208
  2. ABEMACICLIB [Suspect]
     Active Substance: ABEMACICLIB
     Dosage: 150 MG, BID
     Route: 065
  3. ABEMACICLIB [Suspect]
     Active Substance: ABEMACICLIB
     Dosage: 100 MG, BID
     Route: 065
     Dates: start: 202301
  4. GOSERELIN [Concomitant]
     Active Substance: GOSERELIN
     Indication: Malignant neoplasm progression
     Dosage: 3.6 MG, MONTHLY (1/M)
     Dates: start: 202208
  5. ANASTROZOLE [Concomitant]
     Active Substance: ANASTROZOLE
     Indication: Malignant neoplasm progression
     Dosage: 1 MG, UNKNOWN
     Dates: start: 202208

REACTIONS (5)
  - Haematotoxicity [Recovering/Resolving]
  - Neutropenia [Recovering/Resolving]
  - Diarrhoea [Recovering/Resolving]
  - Anaemia [Unknown]
  - Asthenia [Unknown]

NARRATIVE: CASE EVENT DATE: 20231201
